FAERS Safety Report 14204143 (Version 1)
Quarter: 2017Q4

REPORT INFORMATION
  Report Type: Spontaneous
  Country: US (occurrence: US)
  Receive Date: 20171117
  Receipt Date: 20171117
  Transmission Date: 20180321
  Serious: Yes (Disabling)
  Sender: FDA-Public Use
  Company Number: None

PATIENT
  Age: 26 Year
  Sex: Female
  Weight: 58.5 kg

DRUGS (1)
  1. TRIAMCINOLONE 0.1% [Suspect]
     Active Substance: TRIAMCINOLONE
     Route: 061

REACTIONS (4)
  - Skin irritation [None]
  - Infection [None]
  - Loss of personal independence in daily activities [None]
  - Rash [None]

NARRATIVE: CASE EVENT DATE: 20161001
